FAERS Safety Report 5317964-4 (Version None)
Quarter: 2007Q2

REPORT INFORMATION
  Report Type: 
  Country: None (occurrence: None)
  Receive Date: 20070504
  Receipt Date: 20070504
  Transmission Date: 20071010
  Serious: No
  Sender: FDA-Public Use
  Company Number: None

PATIENT
  Sex: Female
  Weight: 62.5964 kg

DRUGS (1)
  1. DURAGESIC-25 [Suspect]
     Indication: NECK PAIN
     Dosage: 50 MCG 1 Q 3 DAYS
     Dates: start: 20050720

REACTIONS (2)
  - PHARMACEUTICAL PRODUCT COMPLAINT [None]
  - THERMAL BURN [None]
